FAERS Safety Report 21313643 (Version 2)
Quarter: 2022Q4

REPORT INFORMATION
  Report Type: Spontaneous
  Country: JP (occurrence: JP)
  Receive Date: 20220909
  Receipt Date: 20221108
  Transmission Date: 20230113
  Serious: No
  Sender: FDA-Public Use
  Company Number: JP-GSK-JP2022JPN129049

PATIENT

DRUGS (1)
  1. SOTROVIMAB [Suspect]
     Active Substance: SOTROVIMAB
     Indication: COVID-19
     Dosage: 500 MG
     Route: 042
     Dates: start: 20220831, end: 20220831

REACTIONS (3)
  - Forceps delivery [Unknown]
  - Exposure during pregnancy [Unknown]
  - Live birth [Unknown]

NARRATIVE: CASE EVENT DATE: 20220911
